FAERS Safety Report 23861570 (Version 3)
Quarter: 2024Q2

REPORT INFORMATION
  Report Type: Spontaneous
  Country: US (occurrence: US)
  Receive Date: 20240516
  Receipt Date: 20240517
  Transmission Date: 20240716
  Serious: Yes (Other)
  Sender: FDA-Public Use
  Company Number: US-GSK-US2024060706

PATIENT
  Sex: Female

DRUGS (1)
  1. BENLYSTA [Suspect]
     Active Substance: BELIMUMAB
     Indication: Systemic lupus erythematosus
     Dosage: UNK, 200 MG/ML
     Dates: start: 20240218

REACTIONS (7)
  - Systemic lupus erythematosus [Unknown]
  - Stomatitis [Unknown]
  - Alopecia [Unknown]
  - Gastrointestinal disorder [Unknown]
  - Arthralgia [Unknown]
  - Parosmia [Unknown]
  - Product dose omission issue [Unknown]
